FAERS Safety Report 5330793-0 (Version None)
Quarter: 2007Q2

REPORT INFORMATION
  Report Type: 
  Country: None (occurrence: None)
  Receive Date: 20070522
  Receipt Date: 20070514
  Transmission Date: 20071010
  Serious: Yes (Hospitalization, Other)
  Sender: FDA-Public Use
  Company Number: US-JNJFOC-20070504017

PATIENT
  Sex: Male

DRUGS (6)
  1. LEVAQUIN [Suspect]
     Indication: URINARY TRACT INFECTION
     Route: 042
  2. LEVAQUIN [Suspect]
     Route: 048
  3. SYNTHROID [Concomitant]
     Route: 065
  4. NORVASC [Concomitant]
     Route: 065
  5. ASPIRIN [Concomitant]
     Route: 065
  6. HYDROCHLOROTHIAZIDE [Concomitant]
     Route: 065

REACTIONS (4)
  - RASH MACULAR [None]
  - SPEECH DISORDER [None]
  - SWELLING FACE [None]
  - SWOLLEN TONGUE [None]
